FAERS Safety Report 4964507-0 (Version None)
Quarter: 2006Q1

REPORT INFORMATION
  Report Type: 
  Country: None (occurrence: None)
  Receive Date: 20060331
  Receipt Date: 20060329
  Transmission Date: 20060701
  Serious: Yes (Hospitalization)
  Sender: FDA-Public Use
  Company Number: 200510683BFR

PATIENT
  Age: 28 Year
  Sex: Male
  Weight: 54 kg

DRUGS (12)
  1. CIPROFLAXACIN [Suspect]
     Indication: PSEUDOMONAS INFECTION
     Dosage: 750 MG, BID, ORAL
     Route: 048
     Dates: start: 20050907, end: 20050909
  2. MERONEM          (MEROPENEM) [Suspect]
     Indication: PSEUDOMONAS INFECTION
     Dosage: 2  G, TID, INTRAVENOUS
     Route: 042
     Dates: start: 20050907, end: 20050909
  3. TOCO [Concomitant]
  4. CREON [Concomitant]
  5. DELURSAN [Concomitant]
  6. NEBCIN [Concomitant]
  7. FLIXOTIDE [Concomitant]
  8. SEREVENT [Concomitant]
  9. MULTIVITAMIN [Concomitant]
  10. CLACIUM CARBONATE W/COLECALCIFEROL [Concomitant]
  11. ZITHROMAX [Concomitant]
  12. COLISTIN SULFATE [Concomitant]

REACTIONS (2)
  - DRY MOUTH [None]
  - DYSGEUSIA [None]
